FAERS Safety Report 16308855 (Version 1)
Quarter: 2019Q2

REPORT INFORMATION
  Report Type: Spontaneous
  Country: US (occurrence: US)
  Receive Date: 20190514
  Receipt Date: 20190514
  Transmission Date: 20190711
  Serious: Yes (Other)
  Sender: FDA-Public Use
  Company Number: US-AUROBINDO-AUR-APL-2019-026353

PATIENT

DRUGS (2)
  1. CICLOSPORIN [Suspect]
     Active Substance: CYCLOSPORINE
     Indication: PEMPHIGOID
     Dosage: UNK
     Route: 065
  2. PREDNISONE. [Suspect]
     Active Substance: PREDNISONE
     Indication: PEMPHIGOID
     Dosage: UNK
     Route: 065

REACTIONS (8)
  - Retinal haemorrhage [Recovered/Resolved]
  - Nocardiosis [Recovered/Resolved]
  - Mental impairment [Unknown]
  - Pneumonia [Recovered/Resolved]
  - Sedation [Unknown]
  - Eye abscess [Recovered/Resolved]
  - Cataract [Recovered/Resolved]
  - Subretinal fibrosis [Recovered/Resolved]
